FAERS Safety Report 4426209-9 (Version None)
Quarter: 2004Q3

REPORT INFORMATION
  Report Type: 
  Country: None (occurrence: None)
  Receive Date: 20040811
  Receipt Date: 20040728
  Transmission Date: 20050211
  Serious: Yes (Hospitalization)
  Sender: FDA-Public Use
  Company Number: MK200406-0138-1

PATIENT
  Age: 74 Year
  Sex: Female

DRUGS (2)
  1. OPTIRAY 320 [Suspect]
     Indication: COMPUTERISED TOMOGRAM ABDOMEN
     Dosage: 75 ML, ONCE
     Dates: start: 20040611, end: 20040611
  2. OPTIRAY 320 [Suspect]
     Indication: COMPUTERISED TOMOGRAM THORAX
     Dosage: 75 ML, ONCE
     Dates: start: 20040611, end: 20040611

REACTIONS (5)
  - ASTHENIA [None]
  - BLOOD PRESSURE DECREASED [None]
  - CONTRAST MEDIA REACTION [None]
  - FEELING ABNORMAL [None]
  - HYPERSENSITIVITY [None]
